FAERS Safety Report 23681951 (Version 1)
Quarter: 2024Q1

REPORT INFORMATION
  Report Type: Spontaneous
  Country: US (occurrence: US)
  Receive Date: 20240328
  Receipt Date: 20240328
  Transmission Date: 20240409
  Serious: No
  Sender: FDA-Public Use
  Company Number: US-ELI_LILLY_AND_COMPANY-US202403016039

PATIENT
  Age: 17 Year
  Sex: Male

DRUGS (1)
  1. BASAGLAR [Suspect]
     Active Substance: INSULIN GLARGINE
     Indication: Diabetes mellitus
     Dosage: UNK UNITS, UNKNOWN
     Route: 058
     Dates: start: 2022

REACTIONS (2)
  - Blood glucose increased [Recovered/Resolved]
  - Off label use [Unknown]
